FAERS Safety Report 8503301-0 (Version None)
Quarter: 2012Q3

REPORT INFORMATION
  Report Type: 
  Country: None (occurrence: None)
  Receive Date: 20120711
  Receipt Date: 20120704
  Transmission Date: 20120928
  Serious: No
  Sender: FDA-Public Use
  Company Number: US-PFIZER INC-2010US-36375

PATIENT
  Sex: Female
  Weight: 65 kg

DRUGS (8)
  1. COUMADIN [Concomitant]
     Dosage: UNK
  2. REGLAN [Concomitant]
     Dosage: UNK
  3. CALAN [Suspect]
     Dosage: 240 MG, UNK
     Route: 048
     Dates: start: 20080116
  4. CALAN [Suspect]
     Indication: SINUS TACHYCARDIA
     Dosage: 180 MG
     Route: 048
     Dates: start: 20070112
  5. LIPITOR [Concomitant]
     Dosage: UNK
  6. PREVACID [Concomitant]
     Dosage: UNK
  7. VESICARE [Concomitant]
     Dosage: UNK
  8. CALAN [Suspect]
     Dosage: 120 MG
     Route: 048
     Dates: start: 20080311

REACTIONS (1)
  - DIZZINESS [None]
